FAERS Safety Report 4919558-9 (Version None)
Quarter: 2006Q1

REPORT INFORMATION
  Report Type: 
  Country: None (occurrence: None)
  Receive Date: 20060222
  Receipt Date: 20050624
  Transmission Date: 20060701
  Serious: Yes (Hospitalization)
  Sender: FDA-Public Use
  Company Number: US-MERCK-0506USA03592

PATIENT
  Age: 69 Year
  Sex: Male
  Weight: 97 kg

DRUGS (5)
  1. VIOXX [Suspect]
     Indication: OSTEOARTHRITIS
     Route: 048
     Dates: start: 19991026, end: 20011001
  2. PREVACID [Concomitant]
     Route: 065
  3. ATIVAN [Concomitant]
     Route: 065
  4. DESYREL [Concomitant]
     Route: 065
  5. VOLTAREN [Concomitant]
     Route: 065

REACTIONS (16)
  - ABDOMINAL PAIN [None]
  - ARTHROPATHY [None]
  - CHRONIC OBSTRUCTIVE PULMONARY DISEASE [None]
  - DEEP VEIN THROMBOSIS [None]
  - DIVERTICULUM [None]
  - GASTRITIS [None]
  - GASTROOESOPHAGEAL REFLUX DISEASE [None]
  - HEPATIC STEATOSIS [None]
  - HERNIA [None]
  - INCISION SITE COMPLICATION [None]
  - INGUINAL HERNIA [None]
  - INGUINAL HERNIA REPAIR [None]
  - OEDEMA PERIPHERAL [None]
  - PAIN IN EXTREMITY [None]
  - SKIN LESION [None]
  - THROMBOSIS [None]
